FAERS Safety Report 24204474 (Version 1)
Quarter: 2024Q3

REPORT INFORMATION
  Report Type: Spontaneous
  Country: JP (occurrence: JP)
  Receive Date: 20240813
  Receipt Date: 20240813
  Transmission Date: 20241017
  Serious: Yes (Life-Threatening, Hospitalization)
  Sender: ACCORD
  Company Number: JP-Accord-440104

PATIENT
  Age: 54 Year
  Sex: Male

DRUGS (3)
  1. CISPLATIN [Suspect]
     Active Substance: CISPLATIN
     Indication: Seminoma
     Dosage: 34 MG ON DAYS 1 TO 5
  2. ETOPOSIDE [Suspect]
     Active Substance: ETOPOSIDE
     Indication: Seminoma
     Dosage: 170 MG ON DAYS 1 TO 5
  3. BLEOMYCIN [Suspect]
     Active Substance: BLEOMYCIN SULFATE
     Indication: Seminoma
     Dosage: 30 MG ON DAYS 2 AND 6

REACTIONS (8)
  - Multiple organ dysfunction syndrome [Recovering/Resolving]
  - Myelosuppression [Recovering/Resolving]
  - Circulatory collapse [Recovering/Resolving]
  - Blood lactic acid increased [Recovering/Resolving]
  - Septic shock [Recovering/Resolving]
  - Fournier^s gangrene [Recovering/Resolving]
  - Escherichia infection [Recovering/Resolving]
  - Necrotising fasciitis [Recovering/Resolving]
